FAERS Safety Report 9135327 (Version 4)
Quarter: 2013Q3

REPORT INFORMATION
  Report Type: Spontaneous
  Country: US (occurrence: US)
  Receive Date: 20130304
  Receipt Date: 20130829
  Transmission Date: 20140515
  Serious: No
  Sender: FDA-Public Use
  Company Number: US-PFIZER INC-2013073085

PATIENT
  Age: 46 Year
  Sex: Male
  Weight: 90.7 kg

DRUGS (8)
  1. XELJANZ [Suspect]
     Indication: RHEUMATOID ARTHRITIS
     Dosage: 5 MG, 2X/DAY
     Route: 048
     Dates: start: 201212, end: 201302
  2. XELJANZ [Suspect]
     Dosage: UNK
     Route: 048
     Dates: start: 20130310, end: 20130710
  3. HOMATROPINE/HYDROCODONE [Concomitant]
     Dosage: UNK
  4. PAROXETINE [Concomitant]
     Dosage: 40 MG
  5. PREDNISONE [Concomitant]
     Indication: RHEUMATOID ARTHRITIS
     Dosage: 5 MG, 1X/DAY
  6. HYDROCODONE [Concomitant]
     Dosage: 3X/DAY
     Route: 048
  7. CARISOPRODOL [Concomitant]
     Dosage: 350 MG, 3X/DAY
     Route: 048
  8. HYDROCODONE W/ACETAMINOPHEN [Concomitant]
     Indication: SPINAL OSTEOARTHRITIS
     Dosage: HYDROCODONE BITARTRATE (5) / PARACETAMOL (500), AS NEEDED

REACTIONS (3)
  - Headache [Recovered/Resolved]
  - Night sweats [Not Recovered/Not Resolved]
  - Drug effect incomplete [Not Recovered/Not Resolved]
